FAERS Safety Report 6466175-8 (Version None)
Quarter: 2009Q4

REPORT INFORMATION
  Report Type: 
  Country: None (occurrence: None)
  Receive Date: 20091201
  Receipt Date: 20091201
  Transmission Date: 20100525
  Serious: No
  Sender: FDA-Public Use
  Company Number: None

PATIENT
  Sex: Male
  Weight: 84.369 kg

DRUGS (1)
  1. TRILIPIX [Suspect]
     Indication: BLOOD TRIGLYCERIDES INCREASED
     Dosage: 135MG 1 PER DAY PO
     Route: 048
     Dates: start: 20090716, end: 20090820

REACTIONS (17)
  - ARTHRALGIA [None]
  - ASTHENIA [None]
  - BALANCE DISORDER [None]
  - CHILLS [None]
  - CHROMATURIA [None]
  - COUGH [None]
  - DIZZINESS [None]
  - DYSPNOEA [None]
  - FALL [None]
  - FATIGUE [None]
  - MOVEMENT DISORDER [None]
  - MUSCLE ATROPHY [None]
  - MYALGIA [None]
  - NIGHT SWEATS [None]
  - POLLAKIURIA [None]
  - URINE ODOUR ABNORMAL [None]
  - WEIGHT DECREASED [None]
